FAERS Safety Report 14709284 (Version 1)
Quarter: 2018Q2

REPORT INFORMATION
  Report Type: Spontaneous
  Country: US (occurrence: US)
  Receive Date: 20180403
  Receipt Date: 20180403
  Transmission Date: 20180711
  Serious: Yes (Hospitalization, Other)
  Sender: FDA-Public Use
  Company Number: US-NOVOPROD-592916

PATIENT
  Age: 26 Year
  Sex: Female

DRUGS (1)
  1. LEVEMIR [Suspect]
     Active Substance: INSULIN DETEMIR
     Indication: TYPE 2 DIABETES MELLITUS
     Dosage: UNK
     Route: 058
     Dates: start: 2013, end: 2013

REACTIONS (6)
  - Exposure during pregnancy [Recovered/Resolved]
  - Injection site hypersensitivity [Recovered/Resolved]
  - Pre-eclampsia [Recovered/Resolved]
  - Blood glucose increased [Recovered/Resolved]
  - Injection site cyst [Recovered/Resolved]
  - Caesarean section [Recovered/Resolved]

NARRATIVE: CASE EVENT DATE: 2013
